FAERS Safety Report 15454613 (Version 1)
Quarter: 2018Q4

REPORT INFORMATION
  Report Type: Spontaneous
  Country: US (occurrence: US)
  Receive Date: 20181002
  Receipt Date: 20181002
  Transmission Date: 20190204
  Serious: Yes (Hospitalization, Other)
  Sender: FDA-Public Use
  Company Number: US-BAYER-2018-179371

PATIENT
  Age: 41 Year
  Sex: Female

DRUGS (9)
  1. PROTAMINE SULFATE. [Concomitant]
     Active Substance: PROTAMINE SULFATE
     Dosage: 20 MG, UNK
     Route: 042
  2. EPTIFIBATIDE. [Concomitant]
     Active Substance: EPTIFIBATIDE
     Dosage: 180 MG/KG, UNK
  3. PHENYLEPHRINE [Concomitant]
     Active Substance: PHENYLEPHRINE\PHENYLEPHRINE HYDROCHLORIDE
  4. HEPARIN [Concomitant]
     Active Substance: HEPARIN SODIUM
     Dosage: 70 UNK, UNK
  5. NITROGLYCERINE [Concomitant]
     Active Substance: NITROGLYCERIN
     Dosage: 0.4 MG, UNK
     Route: 060
  6. MORPHINE [Concomitant]
     Active Substance: MORPHINE
     Dosage: 2 MG, UNK
  7. BAYER ASPIRIN [Suspect]
     Active Substance: ASPIRIN
     Dosage: UNK
  8. CLOPIDOGREL [Interacting]
     Active Substance: CLOPIDOGREL BISULFATE
     Dosage: 600 MG, UNK
  9. NOREPINEPHRINE. [Concomitant]
     Active Substance: NOREPINEPHRINE

REACTIONS (2)
  - Haematoma [None]
  - Labelled drug-drug interaction medication error [None]
